FAERS Safety Report 15933623 (Version 3)
Quarter: 2019Q3

REPORT INFORMATION
  Report Type: Spontaneous
  Country: US (occurrence: US)
  Receive Date: 20190207
  Receipt Date: 20190725
  Transmission Date: 20191004
  Serious: Yes (Disabling, Other)
  Sender: FDA-Public Use
  Company Number: US-ASTRAZENECA-2018SF65594

PATIENT
  Age: 25317 Day
  Sex: Female

DRUGS (36)
  1. NEXIUM [Suspect]
     Active Substance: ESOMEPRAZOLE MAGNESIUM
     Indication: GASTROOESOPHAGEAL REFLUX DISEASE
     Route: 048
     Dates: start: 20150917
  2. AMLODIPINE [Concomitant]
     Active Substance: AMLODIPINE BESYLATE
     Dates: start: 20090623, end: 20170201
  3. HYDROCODONE [Concomitant]
     Active Substance: HYDROCODONE
     Dates: start: 20120229, end: 20160114
  4. MUCINEX [Concomitant]
     Active Substance: GUAIFENESIN
  5. CARVEDILOL. [Concomitant]
     Active Substance: CARVEDILOL
  6. GLYBURIDE. [Concomitant]
     Active Substance: GLYBURIDE
     Dates: start: 20090423
  7. NEXIUM [Suspect]
     Active Substance: ESOMEPRAZOLE MAGNESIUM
     Indication: GASTROOESOPHAGEAL REFLUX DISEASE
     Route: 048
     Dates: start: 201202, end: 20151216
  8. LYRICA [Concomitant]
     Active Substance: PREGABALIN
     Indication: DIABETES MELLITUS
     Dates: start: 20150507, end: 20171120
  9. METOCLOPRAMIDE. [Concomitant]
     Active Substance: METOCLOPRAMIDE
     Dates: start: 20080123, end: 20160506
  10. ATORVASTATIN [Concomitant]
     Active Substance: ATORVASTATIN
     Dates: start: 20150604, end: 20151007
  11. FAMOTIDINE. [Concomitant]
     Active Substance: FAMOTIDINE
     Dates: start: 20100519
  12. NEXIUM [Suspect]
     Active Substance: ESOMEPRAZOLE MAGNESIUM
     Indication: GASTROOESOPHAGEAL REFLUX DISEASE
     Dosage: GENERIC
     Route: 065
     Dates: start: 201603, end: 20171214
  13. MELOXICAM. [Concomitant]
     Active Substance: MELOXICAM
     Indication: ARTHRITIS
     Dates: start: 20120806, end: 20150905
  14. METFORMIN [Concomitant]
     Active Substance: METFORMIN HYDROCHLORIDE
     Dates: start: 20080123, end: 20140722
  15. CLONAZEPAM. [Concomitant]
     Active Substance: CLONAZEPAM
  16. METFORMIN [Concomitant]
     Active Substance: METFORMIN HYDROCHLORIDE
  17. BRILINTA [Concomitant]
     Active Substance: TICAGRELOR
     Dates: start: 20161110, end: 20170904
  18. NEXIUM [Suspect]
     Active Substance: ESOMEPRAZOLE MAGNESIUM
     Indication: GASTROOESOPHAGEAL REFLUX DISEASE
     Route: 048
     Dates: start: 20130430
  19. SYRINGE [Concomitant]
     Active Substance: DEVICE
  20. ASPIRIN. [Concomitant]
     Active Substance: ASPIRIN
     Dates: start: 20120116, end: 20120515
  21. JANUVIA [Concomitant]
     Active Substance: SITAGLIPTIN PHOSPHATE
     Dates: start: 20120124, end: 20161005
  22. CEPHALEXIN. [Concomitant]
     Active Substance: CEPHALEXIN
     Dates: start: 20160108
  23. CILOSTAZOL. [Concomitant]
     Active Substance: CILOSTAZOL
     Dates: start: 20160706, end: 20170904
  24. RANITIDINE. [Concomitant]
     Active Substance: RANITIDINE
     Dates: start: 20161031
  25. GLIMEPIRIDE. [Concomitant]
     Active Substance: GLIMEPIRIDE
  26. QUINAPRIL. [Concomitant]
     Active Substance: QUINAPRIL
  27. CHOLESTYRAMINE. [Concomitant]
     Active Substance: CHOLESTYRAMINE
     Dates: start: 20090424, end: 20160520
  28. OXYCODONE [Concomitant]
     Active Substance: OXYCODONE
     Dates: start: 20120320, end: 20150413
  29. OMEPRAZOLE. [Suspect]
     Active Substance: OMEPRAZOLE
     Indication: GASTROOESOPHAGEAL REFLUX DISEASE
     Route: 065
     Dates: start: 2014
  30. MECLIZINE [Concomitant]
     Active Substance: MECLIZINE HYDROCHLORIDE
     Indication: NAUSEA
     Dates: start: 20111021, end: 20160406
  31. HYDROCODONE [Concomitant]
     Active Substance: HYDROCODONE
  32. LOSARTAN. [Concomitant]
     Active Substance: LOSARTAN
     Indication: BLOOD PRESSURE MEASUREMENT
  33. RANEXA [Concomitant]
     Active Substance: RANOLAZINE
     Dates: start: 20150813, end: 20161110
  34. CARVEDILOL. [Concomitant]
     Active Substance: CARVEDILOL
  35. EFFIENT [Concomitant]
     Active Substance: PRASUGREL HYDROCHLORIDE
  36. TRAZODONE [Concomitant]
     Active Substance: TRAZODONE HYDROCHLORIDE
     Dates: start: 20090623

REACTIONS (4)
  - Acute kidney injury [Not Recovered/Not Resolved]
  - Rebound acid hypersecretion [Unknown]
  - Chronic kidney disease [Not Recovered/Not Resolved]
  - Renal failure [Unknown]

NARRATIVE: CASE EVENT DATE: 20151028
